FAERS Safety Report 22074357 (Version 1)
Quarter: 2023Q1

REPORT INFORMATION
  Report Type: Spontaneous
  Country: US (occurrence: None)
  Receive Date: 20230308
  Receipt Date: 20230308
  Transmission Date: 20230418
  Serious: Yes (Disabling)
  Sender: FDA-Public Use
  Company Number: None

PATIENT
  Age: 65 Year
  Sex: Male
  Weight: 77.4 kg

DRUGS (7)
  1. RYTARY [Suspect]
     Active Substance: CARBIDOPA\LEVODOPA
     Indication: Parkinson^s disease
     Dosage: OTHER QUANTITY : 3 CAPSULE(S);?OTHER FREQUENCY : 5X PER DAY;?
     Route: 048
     Dates: start: 20230131, end: 20230218
  2. METOPROLOL [Concomitant]
     Active Substance: METOPROLOL
  3. IMDUR [Concomitant]
     Active Substance: ISOSORBIDE MONONITRATE
  4. ASPIRIN [Concomitant]
     Active Substance: ASPIRIN
  5. ATORVASTATIN [Concomitant]
     Active Substance: ATORVASTATIN
  6. FAMOTIDINE [Concomitant]
     Active Substance: FAMOTIDINE
  7. ONGENTYS [Concomitant]
     Active Substance: OPICAPONE

REACTIONS (6)
  - Product quality issue [None]
  - Therapeutic product effect decreased [None]
  - Product size issue [None]
  - Product shape issue [None]
  - Product physical issue [None]
  - Product contamination [None]

NARRATIVE: CASE EVENT DATE: 20230201
